FAERS Safety Report 4991163-8 (Version None)
Quarter: 2006Q2

REPORT INFORMATION
  Report Type: 
  Country: None (occurrence: None)
  Receive Date: 20060428
  Receipt Date: 20060417
  Transmission Date: 20061013
  Serious: Yes (Other)
  Sender: FDA-Public Use
  Company Number: 2005126493

PATIENT
  Age: 68 Year
  Sex: Male

DRUGS (6)
  1. XALATAN [Suspect]
     Indication: INTRAOCULAR PRESSURE INCREASED
     Dosage: 2 DROP (1 DROP, 1 IN 1 D), OPHTHALMIC
     Route: 047
     Dates: start: 20000101
  2. KETOROLAC TROMETHAMINE [Suspect]
     Indication: EYE INFECTION
  3. AVANDAMET [Concomitant]
  4. SIMVASTATIN [Concomitant]
  5. AVANDIA [Concomitant]
  6. ALL OTHER THERAPEUTIC PRODUCTS (ALL OTHER THERAPEUTIC PRODUCTS) [Concomitant]

REACTIONS (4)
  - EYE INFECTION [None]
  - EYE IRRITATION [None]
  - OCULAR VASCULAR DISORDER [None]
  - PHARMACEUTICAL PRODUCT COMPLAINT [None]
